FAERS Safety Report 17867149 (Version 1)
Quarter: 2020Q2

REPORT INFORMATION
  Report Type: Spontaneous
  Country: US (occurrence: US)
  Receive Date: 20200605
  Receipt Date: 20200605
  Transmission Date: 20200714
  Serious: Yes (Death, Hospitalization, Other)
  Sender: FDA-Public Use
  Company Number: US-SA-2020SA012842

PATIENT

DRUGS (2)
  1. CAMPATH [Suspect]
     Active Substance: ALEMTUZUMAB
     Indication: TRANSPLANT REJECTION
     Dosage: 30 MG, 1X
     Route: 058
     Dates: start: 20190220, end: 20190220
  2. CAMPATH [Suspect]
     Active Substance: ALEMTUZUMAB
     Indication: INFECTION
     Dosage: 30 MG, 1X
     Route: 058
     Dates: start: 20200106, end: 20200106

REACTIONS (4)
  - Lung transplant rejection [Fatal]
  - Sepsis [Fatal]
  - Off label use [Unknown]
  - Incorrect route of product administration [Unknown]

NARRATIVE: CASE EVENT DATE: 20190220
